FAERS Safety Report 8077886-5 (Version None)
Quarter: 2012Q1

REPORT INFORMATION
  Report Type: 
  Country: None (occurrence: None)
  Receive Date: 20120127
  Receipt Date: 20120125
  Transmission Date: 20120608
  Serious: Yes (Hospitalization)
  Sender: FDA-Public Use
  Company Number: GB-MERCK-1201GBR00082

PATIENT
  Age: 85 Year
  Sex: Female
  Weight: 69 kg

DRUGS (12)
  1. FOSAMAX [Suspect]
     Indication: OSTEOPOROSIS
     Route: 048
     Dates: start: 20120101, end: 20120101
  2. CALCIUM CARBONATE [Concomitant]
     Route: 065
  3. ASPIRIN [Concomitant]
     Route: 065
  4. PROCHLORPERAZINE [Concomitant]
     Route: 065
  5. ALBUTEROL [Concomitant]
     Route: 065
  6. TIOTROPIUM BROMIDE [Concomitant]
     Route: 065
  7. PREDNISOLONE [Concomitant]
     Indication: CHRONIC OBSTRUCTIVE PULMONARY DISEASE
     Route: 065
  8. FLUTICASONE PROPIONATE AND SALMETEROL XINAFOATE [Concomitant]
     Route: 065
  9. ENOXAPARIN SODIUM [Concomitant]
     Route: 065
  10. LEVOTHYROXINE SODIUM [Concomitant]
     Route: 065
  11. DIPYRIDAMOLE [Concomitant]
     Route: 065
  12. CARBOCYSTEINE [Concomitant]
     Route: 065

REACTIONS (3)
  - FALL [None]
  - OESOPHAGEAL ULCER HAEMORRHAGE [None]
  - PELVIC FRACTURE [None]
